FAERS Safety Report 12631137 (Version 2)
Quarter: 2016Q3

REPORT INFORMATION
  Report Type: Spontaneous
  Country: US (occurrence: US)
  Receive Date: 20160808
  Receipt Date: 20160808
  Transmission Date: 20161109
  Serious: No
  Sender: FDA-Public Use
  Company Number: US-BEH-2015052450

PATIENT
  Sex: Female
  Weight: 53 kg

DRUGS (20)
  1. VALIUM [Concomitant]
     Active Substance: DIAZEPAM
  2. EVISTA [Concomitant]
     Active Substance: RALOXIFENE HYDROCHLORIDE
  3. NEXIUM [Concomitant]
     Active Substance: ESOMEPRAZOLE MAGNESIUM
  4. HIZENTRA [Suspect]
     Active Substance: HUMAN IMMUNOGLOBULIN G
     Indication: IMMUNODEFICIENCY COMMON VARIABLE
     Route: 058
  5. ACETAMINOPHEN. [Concomitant]
     Active Substance: ACETAMINOPHEN
  6. NASONEX [Concomitant]
     Active Substance: MOMETASONE FUROATE
  7. ALIGN [Concomitant]
     Active Substance: BIFIDOBACTERIUM LONGUM SUBSP. INFANTIS
  8. LMX [Concomitant]
     Active Substance: LIDOCAINE
  9. SALINE NASAL SPRAY [Concomitant]
     Active Substance: SODIUM CHLORIDE
  10. CALTRATE [Concomitant]
     Active Substance: CALCIUM CARBONATE
  11. PATADAY [Concomitant]
     Active Substance: OLOPATADINE HYDROCHLORIDE
  12. MUCINEX [Concomitant]
     Active Substance: GUAIFENESIN
  13. HIZENTRA [Suspect]
     Active Substance: HUMAN IMMUNOGLOBULIN G
     Route: 058
  14. DIPHENHYDRAMINE. [Concomitant]
     Active Substance: DIPHENHYDRAMINE
  15. VITAMIN D3 [Concomitant]
     Active Substance: CHOLECALCIFEROL
  16. ASPIRIN. [Concomitant]
     Active Substance: ASPIRIN
  17. EPIPEN [Concomitant]
     Active Substance: EPINEPHRINE
  18. CLEMASTINE [Concomitant]
     Active Substance: CLEMASTINE
  19. PULMICORT TURBUHALER [Concomitant]
     Active Substance: BUDESONIDE
  20. AMBIEN [Concomitant]
     Active Substance: ZOLPIDEM TARTRATE

REACTIONS (3)
  - Malaise [Unknown]
  - Arthralgia [Unknown]
  - Abdominal pain [Unknown]
